FAERS Safety Report 7971886-9 (Version None)
Quarter: 2011Q4

REPORT INFORMATION
  Report Type: 
  Country: None (occurrence: None)
  Receive Date: 20111212
  Receipt Date: 20111202
  Transmission Date: 20120403
  Serious: Yes (Other)
  Sender: FDA-Public Use
  Company Number: HU-ASTRAZENECA-2011SE73053

PATIENT
  Age: 61 Year
  Sex: Female

DRUGS (1)
  1. BUDESONIDE/FORMOTEROL [Suspect]
     Indication: ASTHMA
     Dosage: 160 MCG TWO TIMES A DAY
     Route: 055

REACTIONS (1)
  - PLICATED TONGUE [None]
